FAERS Safety Report 15582892 (Version 1)
Quarter: 2018Q4

REPORT INFORMATION
  Report Type: Spontaneous
  Country: FR (occurrence: FR)
  Receive Date: 20181103
  Receipt Date: 20181103
  Transmission Date: 20190205
  Serious: Yes (Hospitalization, Other)
  Sender: FDA-Public Use
  Company Number: FR-AUROBINDO-AUR-APL-2018-053179

PATIENT
  Age: 48 Year
  Sex: Female
  Weight: 44 kg

DRUGS (3)
  1. PARACETAMOL [Suspect]
     Active Substance: ACETAMINOPHEN
     Indication: GAIT DISTURBANCE
     Dosage: 1000 MILLIGRAM, DAILY
     Route: 048
     Dates: start: 20180611, end: 20180622
  2. KETAMINE [Suspect]
     Active Substance: KETAMINE
     Indication: PAIN
     Dosage: 0.5 MILLIGRAM/KILOGRAM
     Route: 042
     Dates: start: 20180618, end: 20180622
  3. KETOPROFEN. [Suspect]
     Active Substance: KETOPROFEN
     Indication: ANALGESIC INTERVENTION SUPPORTIVE THERAPY
     Dosage: 200 MILLIGRAM, DAILY
     Route: 048
     Dates: start: 20180618, end: 20180622

REACTIONS (1)
  - Hepatitis [Recovered/Resolved]

NARRATIVE: CASE EVENT DATE: 20180618
